FAERS Safety Report 4278719-5 (Version None)
Quarter: 2004Q1

REPORT INFORMATION
  Report Type: 
  Country: None (occurrence: None)
  Receive Date: 20040122
  Receipt Date: 20040115
  Transmission Date: 20041129
  Serious: Yes (Hospitalization)
  Sender: FDA-Public Use
  Company Number: TPA2003A01702

PATIENT
  Age: 54 Year
  Sex: Male

DRUGS (6)
  1. ACTOS [Suspect]
     Indication: DIABETES MELLITUS
     Dosage: 15 MG, 1 IN 1 D, PER ORAL
     Route: 048
     Dates: start: 20030301
  2. LIPITOR [Concomitant]
  3. LANTUS [Concomitant]
  4. HUMALOG (INSULIN GLARGINE) [Concomitant]
  5. HUMALOG [Concomitant]
  6. IMDUR [Concomitant]

REACTIONS (6)
  - MACULAR OEDEMA [None]
  - OEDEMA PERIPHERAL [None]
  - PITTING OEDEMA [None]
  - RETINAL OEDEMA [None]
  - STENT PLACEMENT [None]
  - VISUAL ACUITY REDUCED [None]
